FAERS Safety Report 7898958-1 (Version None)
Quarter: 2011Q4

REPORT INFORMATION
  Report Type: 
  Country: None (occurrence: None)
  Receive Date: 20111107
  Receipt Date: 20111028
  Transmission Date: 20120403
  Serious: Yes (Other)
  Sender: FDA-Public Use
  Company Number: US-ASTELLAS-2011US007081

PATIENT
  Sex: Female
  Weight: 61 kg

DRUGS (1)
  1. TACROLIMUS [Suspect]
     Indication: DERMATITIS ATOPIC
     Dosage: 0.03 %, WEEKLY
     Route: 061
     Dates: start: 20081205

REACTIONS (1)
  - WOUND INFECTION STAPHYLOCOCCAL [None]
